FAERS Safety Report 6624082-1 (Version None)
Quarter: 2010Q1

REPORT INFORMATION
  Report Type: 
  Country: None (occurrence: None)
  Receive Date: 20100310
  Receipt Date: 20100304
  Transmission Date: 20100710
  Serious: Yes (Other)
  Sender: FDA-Public Use
  Company Number: ES-ABBOTT-10P-144-0630181-00

PATIENT
  Sex: Male

DRUGS (1)
  1. PROCRIN DEPOT 11.25 MG [Suspect]
     Indication: PROSTATE CANCER
     Dosage: 1 VIAL EVERY 3 MONTHS
     Route: 030
     Dates: start: 20090101, end: 20100101

REACTIONS (1)
  - PEMPHIGUS [None]
